FAERS Safety Report 10156217 (Version 1)
Quarter: 2014Q2

REPORT INFORMATION
  Report Type: Spontaneous
  Country: US (occurrence: US)
  Receive Date: 20140507
  Receipt Date: 20140507
  Transmission Date: 20141212
  Serious: Yes (Other)
  Sender: FDA-Public Use
  Company Number: US-ABBVIE-14P-163-1231633-00

PATIENT
  Age: 85 Year
  Sex: Female
  Weight: 48.12 kg

DRUGS (5)
  1. SYNTHROID [Suspect]
     Indication: THYROID CANCER
     Dosage: 2 YEARS AGO
     Dates: start: 2012
  2. SYNTHROID [Interacting]
     Indication: HYPOTHYROIDISM
  3. CIPRO [Interacting]
     Indication: MYCOBACTERIUM ABSCESSUS INFECTION
     Dates: start: 20131011, end: 201312
  4. IMIPENEM [Concomitant]
     Indication: MYCOBACTERIUM ABSCESSUS INFECTION
     Dates: start: 20131011, end: 201312
  5. AMIKACIN [Concomitant]
     Indication: MYCOBACTERIUM ABSCESSUS INFECTION
     Dates: start: 20131011, end: 201312

REACTIONS (9)
  - Squamous cell carcinoma of skin [Recovering/Resolving]
  - Burning sensation [Not Recovered/Not Resolved]
  - Pollakiuria [Not Recovered/Not Resolved]
  - Mycobacterium abscessus infection [Recovering/Resolving]
  - Pulmonary oedema [Recovered/Resolved]
  - Pruritus [Unknown]
  - Burning sensation [Unknown]
  - Burning sensation [Unknown]
  - Drug interaction [Unknown]
